FAERS Safety Report 5726146-3 (Version None)
Quarter: 2008Q2

REPORT INFORMATION
  Report Type: 
  Country: None (occurrence: None)
  Receive Date: 20080502
  Receipt Date: 20080423
  Transmission Date: 20081010
  Serious: Yes (Other)
  Sender: FDA-Public Use
  Company Number: US-AMGEN-US275971

PATIENT
  Sex: Male

DRUGS (6)
  1. ENBREL [Suspect]
     Indication: RHEUMATOID ARTHRITIS
     Route: 058
     Dates: start: 20030101
  2. ENBREL - COMPARATOR (PREDNISONE) [Concomitant]
     Route: 065
     Dates: start: 19911001
  3. ENBREL [Concomitant]
     Route: 065
     Dates: start: 20011001
  4. FOSAMAX [Concomitant]
     Route: 065
     Dates: start: 20071127
  5. ASPIRIN [Concomitant]
     Route: 065
     Dates: start: 20020227
  6. FOLIC ACID [Concomitant]
     Route: 065
     Dates: start: 20011121

REACTIONS (1)
  - SKIN LESION [None]
